FAERS Safety Report 12119639 (Version 1)
Quarter: 2016Q1

REPORT INFORMATION
  Report Type: Spontaneous
  Country: US (occurrence: None)
  Receive Date: 20160225
  Receipt Date: 20160225
  Transmission Date: 20160526
  Serious: Yes (Hospitalization, Disabling)
  Sender: FDA-Public Use
  Company Number: None

PATIENT
  Age: 71 Year
  Sex: Male
  Weight: 74.84 kg

DRUGS (12)
  1. XARELTO [Concomitant]
     Active Substance: RIVAROXABAN
  2. METFORMIN [Concomitant]
     Active Substance: METFORMIN HYDROCHLORIDE
  3. METROPROLOL [Concomitant]
     Active Substance: METOPROLOL
  4. SPIRONALACTONE [Concomitant]
     Active Substance: SPIRONOLACTONE
  5. DAILY MULTIVITAMIN [Concomitant]
     Active Substance: VITAMINS
  6. CRESTOR [Concomitant]
     Active Substance: ROSUVASTATIN CALCIUM
  7. TAMSULOSIN [Concomitant]
     Active Substance: TAMSULOSIN
  8. SERTRALINE [Concomitant]
     Active Substance: SERTRALINE HYDROCHLORIDE
  9. PACEMAKER/DEFIB [Concomitant]
  10. FEUROSAMIDE [Concomitant]
  11. PANTROPRAZOLE [Concomitant]
  12. HARVONI [Suspect]
     Active Substance: LEDIPASVIR\SOFOSBUVIR
     Indication: HEPATITIS C
     Route: 048
     Dates: start: 20150501, end: 20150528

REACTIONS (9)
  - Drug interaction [None]
  - Muscular weakness [None]
  - Dizziness [None]
  - Decreased appetite [None]
  - Vomiting [None]
  - Gait disturbance [None]
  - Muscle spasms [None]
  - Nausea [None]
  - Fatigue [None]

NARRATIVE: CASE EVENT DATE: 20150529
